FAERS Safety Report 4285710-1 (Version None)
Quarter: 2004Q1

REPORT INFORMATION
  Report Type: 
  Country: None (occurrence: None)
  Receive Date: 20040203
  Receipt Date: 20040123
  Transmission Date: 20041129
  Serious: No
  Sender: FDA-Public Use
  Company Number: 2004GB00049

PATIENT
  Age: 82 Year
  Sex: Male

DRUGS (10)
  1. IRESSA [Suspect]
     Indication: COLORECTAL CANCER
     Dosage: 250 MG DAILY PO
     Route: 048
     Dates: start: 20030526
  2. FLUOROURACIL [Suspect]
     Indication: COLORECTAL CANCER
     Dates: start: 20030609
  3. LEUCOVORIN CALCIUM [Suspect]
     Indication: COLORECTAL CANCER
     Dates: start: 20030609
  4. ASPIRIN [Concomitant]
  5. CANDESARTAN [Concomitant]
  6. SALBUTAMOL [Concomitant]
  7. TAMSULOSIN [Concomitant]
  8. MAXOLON [Concomitant]
  9. FLIXOTIDE [Concomitant]
  10. BECOTIDE [Concomitant]

REACTIONS (4)
  - DENTAL CARIES [None]
  - DENTAL PLAQUE [None]
  - DRUG INTERACTION POTENTIATION [None]
  - GINGIVAL DISORDER [None]
